FAERS Safety Report 5013638-8 (Version None)
Quarter: 2006Q2

REPORT INFORMATION
  Report Type: 
  Country: None (occurrence: None)
  Receive Date: 20060530
  Receipt Date: 20060515
  Transmission Date: 20061013
  Serious: Yes (Death)
  Sender: FDA-Public Use
  Company Number: JP-JPN-A200601578

PATIENT
  Age: 47 Year
  Sex: Female

DRUGS (5)
  1. PAXIL [Suspect]
     Indication: DEPRESSION
     Dosage: 1400MG PER DAY
     Route: 048
  2. CYANAMIDE [Concomitant]
     Dosage: 2U PER DAY
     Route: 048
  3. UNKNOWN DRUG [Concomitant]
     Dosage: 140U PER DAY
     Route: 048
  4. MEILAX [Concomitant]
     Dosage: 140U PER DAY
     Route: 048
  5. PROTHIADEN [Concomitant]
     Dosage: 140U PER DAY
     Route: 048

REACTIONS (2)
  - COMPLETED SUICIDE [None]
  - INTENTIONAL OVERDOSE [None]
